FAERS Safety Report 19583720 (Version 4)
Quarter: 2022Q1

REPORT INFORMATION
  Report Type: Report from Study
  Country: ES (occurrence: None)
  Receive Date: 20210720
  Receipt Date: 20220104
  Transmission Date: 20220424
  Serious: Yes (Hospitalization)
  Sender: FDA-Public Use
  Company Number: ES-ROCHE-2799085

PATIENT
  Age: 70 Year
  Sex: Male
  Weight: 58 kg

DRUGS (26)
  1. PLACEBO [Suspect]
     Active Substance: UNSPECIFIED INGREDIENT
     Indication: Small cell lung cancer extensive stage
     Dosage: 16/MAR/2021, MOST RECENT DOSE
     Route: 042
     Dates: start: 20201203
  2. ATEZOLIZUMAB [Suspect]
     Active Substance: ATEZOLIZUMAB
     Indication: Small cell lung cancer extensive stage
     Dosage: ON 16/MAR/2021 AND 27/MAY/2021, MOST RECENT DOSE RECEIVED (1200 MG) PRIOR TO ONSET OF AE AND SAE.
     Route: 041
     Dates: start: 20201203
  3. CARBOPLATIN [Suspect]
     Active Substance: CARBOPLATIN
     Indication: Small cell lung cancer extensive stage
     Dosage: 02/FEB/2021, MOST RECENT DOSE (275.56 MG) PRIOR TO AE/SAE ONSET.
     Route: 042
     Dates: start: 20201203
  4. ETOPOSIDE [Suspect]
     Active Substance: ETOPOSIDE
     Indication: Small cell lung cancer extensive stage
     Dosage: 02/FEB/2021, MOST RECENT DOSE (120.83 MG) PRIOR TO AE/SAE
     Route: 042
     Dates: start: 20201203
  5. ATORVASTATIN [Concomitant]
     Active Substance: ATORVASTATIN
     Route: 048
  6. BISOPROLOL [Concomitant]
     Active Substance: BISOPROLOL
     Indication: Congestive cardiomyopathy
     Route: 048
  7. ENALAPRIL [Concomitant]
     Active Substance: ENALAPRIL
     Indication: Congestive cardiomyopathy
     Route: 048
  8. FUROSEMIDE [Concomitant]
     Active Substance: FUROSEMIDE
     Route: 048
  9. SITAGLIPTIN [Concomitant]
     Active Substance: SITAGLIPTIN
     Indication: Diabetes mellitus
     Route: 048
  10. OMEPRAZOLE [Concomitant]
     Active Substance: OMEPRAZOLE
     Route: 048
  11. ENOXAPARIN [Concomitant]
     Active Substance: ENOXAPARIN
     Indication: Prophylaxis
     Route: 058
     Dates: start: 2020
  12. ENOXAPARIN [Concomitant]
     Active Substance: ENOXAPARIN
     Route: 058
     Dates: start: 20210326, end: 20210326
  13. OXYCODONE [Concomitant]
     Active Substance: OXYCODONE
     Indication: Chest pain
     Route: 048
     Dates: start: 2020
  14. NALOXONE [Concomitant]
     Active Substance: NALOXONE
     Indication: Chest pain
     Route: 048
     Dates: start: 2020
  15. AMIODARONE [Concomitant]
     Active Substance: AMIODARONE
     Indication: Congestive cardiomyopathy
     Route: 048
     Dates: start: 20210326, end: 20210330
  16. AMIODARONE [Concomitant]
     Active Substance: AMIODARONE
     Route: 048
     Dates: start: 20210603, end: 20210618
  17. TRIMETHOPRIM [Concomitant]
     Active Substance: TRIMETHOPRIM
     Indication: Infection prophylaxis
     Route: 048
     Dates: start: 20210326
  18. SULFAMETHOXAZOLE [Concomitant]
     Active Substance: SULFAMETHOXAZOLE
     Indication: Infection prophylaxis
     Route: 048
     Dates: start: 20210326
  19. NOVORAPID [Concomitant]
     Active Substance: INSULIN ASPART
     Indication: Type 2 diabetes mellitus
     Route: 058
     Dates: start: 20210326, end: 20210330
  20. MAGNESIUM OXIDE [Concomitant]
     Active Substance: MAGNESIUM OXIDE
     Route: 048
     Dates: start: 20210328, end: 20210328
  21. TINZAPARIN [Concomitant]
     Active Substance: TINZAPARIN
     Indication: Prophylaxis
     Route: 042
     Dates: start: 20210326, end: 20210330
  22. NOVORAPID [Concomitant]
     Active Substance: INSULIN ASPART
     Indication: Type 2 diabetes mellitus
     Dosage: MEDICATION DOSE 100 OTHER
     Route: 058
     Dates: start: 20210603, end: 20210618
  23. LOPERAMIDE [Concomitant]
     Active Substance: LOPERAMIDE
     Indication: Diarrhoea
     Route: 048
     Dates: start: 20210604, end: 20210616
  24. LOPERAMIDE [Concomitant]
     Active Substance: LOPERAMIDE
     Route: 048
     Dates: start: 20210223, end: 20210324
  25. ACETAMINOPHEN [Concomitant]
     Active Substance: ACETAMINOPHEN
     Indication: Pain prophylaxis
     Route: 042
     Dates: start: 20210603, end: 20210607
  26. LEVOFLOXACIN [Concomitant]
     Active Substance: LEVOFLOXACIN
     Indication: Respiratory tract infection
     Route: 048
     Dates: start: 20210520, end: 20210527

REACTIONS (2)
  - Diarrhoea [Recovered/Resolved]
  - Immune-mediated enterocolitis [Recovered/Resolved]

NARRATIVE: CASE EVENT DATE: 20210325
